FAERS Safety Report 11885313 (Version 1)
Quarter: 2015Q4

REPORT INFORMATION
  Report Type: Spontaneous
  Country: US (occurrence: None)
  Receive Date: 20151231
  Receipt Date: 20151231
  Transmission Date: 20160305
  Serious: No
  Sender: FDA-Public Use
  Company Number: None

PATIENT
  Age: 74 Year
  Sex: Female

DRUGS (2)
  1. IBRANCE [Suspect]
     Active Substance: PALBOCICLIB
     Indication: BREAST CANCER
     Dosage: 75 MG  QD 1-21 THEN 7 OFF
     Route: 048
     Dates: start: 20150414
  2. LETROZOLE. [Concomitant]
     Active Substance: LETROZOLE

REACTIONS (6)
  - Fatigue [None]
  - White blood cell count decreased [None]
  - Dyspnoea [None]
  - Dizziness [None]
  - Alopecia [None]
  - Memory impairment [None]

NARRATIVE: CASE EVENT DATE: 20151215
